FAERS Safety Report 5157881-6 (Version None)
Quarter: 2006Q4

REPORT INFORMATION
  Report Type: 
  Country: None (occurrence: None)
  Receive Date: 20061120
  Receipt Date: 20061120
  Transmission Date: 20070319
  Serious: Yes (Death)
  Sender: FDA-Public Use
  Company Number: None

PATIENT
  Age: 65 Year
  Sex: Female
  Weight: 70.3075 kg

DRUGS (2)
  1. NEURONTIN [Suspect]
     Indication: PAIN MANAGEMENT
     Dosage: PO
     Route: 048
     Dates: start: 20000601, end: 20030613
  2. ZOLOFT [Suspect]
     Indication: DEPRESSION
     Dosage: PO
     Route: 048
     Dates: start: 20000601, end: 20030613

REACTIONS (3)
  - DRUG LEVEL INCREASED [None]
  - PARALYSIS [None]
  - SUICIDAL IDEATION [None]
